FAERS Safety Report 4506403-9 (Version None)
Quarter: 2004Q4

REPORT INFORMATION
  Report Type: 
  Country: None (occurrence: None)
  Receive Date: 20041025
  Receipt Date: 20040129
  Transmission Date: 20050328
  Serious: Yes (Other)
  Sender: FDA-Public Use
  Company Number: US-JNJFOC-20040106066

PATIENT
  Age: 49 Year
  Sex: Female

DRUGS (13)
  1. REMICADE [Suspect]
     Indication: CROHN'S DISEASE
     Dosage: INTRAVENOUS
     Route: 042
     Dates: start: 20030601
  2. CALCIUM CARBONATE (CALCIUM CARBONATE) [Concomitant]
  3. ACETAMINOPHEN [Concomitant]
  4. LEVSIN (HYOSCYAMINE SULFATE [Concomitant]
  5. REGLAN [Concomitant]
  6. COLESTID [Concomitant]
  7. LEVSINEX (HYOSCYAMINE SULFATE) [Concomitant]
  8. DOXEPIN (DOXEPIN) [Concomitant]
  9. MIACALCIN [Concomitant]
  10. INDERAL [Concomitant]
  11. IMURAN [Concomitant]
  12. PRILOSEC [Concomitant]
  13. PENTASA [Concomitant]

REACTIONS (4)
  - ANTINUCLEAR ANTIBODY POSITIVE [None]
  - ARTHRALGIA [None]
  - DOUBLE STRANDED DNA ANTIBODY [None]
  - SWELLING [None]
